FAERS Safety Report 7474292-9 (Version None)
Quarter: 2011Q2

REPORT INFORMATION
  Report Type: 
  Country: None (occurrence: None)
  Receive Date: 20110511
  Receipt Date: 20110503
  Transmission Date: 20111010
  Serious: Yes (Hospitalization, Other)
  Sender: FDA-Public Use
  Company Number: US-AMGEN-USASP2011019824

PATIENT
  Age: 60 Year
  Sex: Female

DRUGS (1)
  1. ENBREL [Suspect]
     Indication: PSORIASIS
     Dosage: 50 MG, 2 TIMES/WK
     Dates: start: 20100903, end: 20110406

REACTIONS (8)
  - BLOOD GLUCOSE INCREASED [None]
  - HYPERSOMNIA [None]
  - TREMOR [None]
  - GAIT DISTURBANCE [None]
  - MEMORY IMPAIRMENT [None]
  - MALAISE [None]
  - HEPATIC ENCEPHALOPATHY [None]
  - AMMONIA INCREASED [None]
